FAERS Safety Report 21237700 (Version 2)
Quarter: 2022Q3

REPORT INFORMATION
  Report Type: Spontaneous
  Country: US (occurrence: US)
  Receive Date: 20220822
  Receipt Date: 20220928
  Transmission Date: 20221026
  Serious: No
  Sender: FDA-Public Use
  Company Number: US-PFIZER INC-202201074335

PATIENT
  Age: 38 Year
  Sex: Female
  Weight: 52.154 kg

DRUGS (1)
  1. PAXLOVID [Suspect]
     Active Substance: NIRMATRELVIR\RITONAVIR
     Indication: COVID-19 treatment
     Dosage: 10 MG, 2X/DAY (AS PRESCRIBED 10MG TWICE/DAY)
     Dates: start: 20220725, end: 20220730

REACTIONS (3)
  - COVID-19 [Recovered/Resolved with Sequelae]
  - Palpitations [Not Recovered/Not Resolved]
  - Off label use [Unknown]

NARRATIVE: CASE EVENT DATE: 20220725
